FAERS Safety Report 5055882-X (Version None)
Quarter: 2006Q3

REPORT INFORMATION
  Report Type: 
  Country: None (occurrence: None)
  Receive Date: 20060720
  Receipt Date: 20060712
  Transmission Date: 20061208
  Serious: Yes (Hospitalization)
  Sender: FDA-Public Use
  Company Number: FR-JNJFOC-20060702231

PATIENT
  Age: 66 Year
  Sex: Female

DRUGS (8)
  1. HALDOL [Suspect]
     Dosage: HALOPERIDOL DOSE READJUSTED TO 7.5MG IN THE MORNING AND 5MG IN THE EVENING.
     Route: 048
  2. HALDOL [Suspect]
     Indication: SCHIZOTYPAL PERSONALITY DISORDER
     Route: 048
  3. IMOVANE [Suspect]
     Indication: SLEEP DISORDER
     Route: 048
  4. TERCIAN [Suspect]
     Route: 048
  5. TERCIAN [Suspect]
     Indication: SCHIZOTYPAL PERSONALITY DISORDER
     Route: 048
  6. NEURONTIN [Suspect]
     Indication: EPILEPSY
     Route: 048
  7. DEPAMIDE [Suspect]
     Indication: SCHIZOTYPAL PERSONALITY DISORDER
     Route: 048
  8. COUMADIN [Suspect]
     Indication: EMBOLISM VENOUS
     Route: 048

REACTIONS (1)
  - FALL [None]
